FAERS Safety Report 10750135 (Version 2)
Quarter: 2015Q4

REPORT INFORMATION
  Report Type: Report from Study
  Country: MX (occurrence: MX)
  Receive Date: 20150129
  Receipt Date: 20151028
  Transmission Date: 20160304
  Serious: No
  Sender: FDA-Public Use
  Company Number: PHHY2015MX009202

PATIENT
  Sex: Male

DRUGS (3)
  1. RITALINE [Suspect]
     Active Substance: METHYLPHENIDATE HYDROCHLORIDE
     Indication: ATTENTION DEFICIT/HYPERACTIVITY DISORDER
     Dosage: 2 DF (1.5 TABLET IN THE MORNING AND 0.5 TABLET IN THE AFTERNOON), QD
     Route: 065
     Dates: start: 201305
  2. RITALINE [Suspect]
     Active Substance: METHYLPHENIDATE HYDROCHLORIDE
     Indication: MENTAL RETARDATION
     Dosage: 2.5 DF (1.75 TABLET IN THE MORNING AND 0.75 TABLET IN THE AFTERNOON), QD
     Route: 065
  3. RISPERIDONE. [Concomitant]
     Active Substance: RISPERIDONE
     Indication: PRODUCT USED FOR UNKNOWN INDICATION
     Dosage: 0.5 DF, BID (IN THE MORNING AND IN THE AFTERNOON)
     Route: 065

REACTIONS (2)
  - Attention deficit/hyperactivity disorder [Unknown]
  - Off label use [Unknown]
